FAERS Safety Report 13444449 (Version 3)
Quarter: 2017Q3

REPORT INFORMATION
  Report Type: Spontaneous
  Country: GB (occurrence: GB)
  Receive Date: 20170414
  Receipt Date: 20170828
  Transmission Date: 20171127
  Serious: Yes (Life-Threatening)
  Sender: FDA-Public Use
  Company Number: GB-PFIZER INC-2017160737

PATIENT
  Age: 32 Year
  Sex: Female

DRUGS (2)
  1. MISOPROSTOL. [Suspect]
     Active Substance: MISOPROSTOL
     Indication: ABORTION INDUCED
     Dosage: 800 UG, 1X/DAY
     Route: 067
     Dates: start: 20030521, end: 20030521
  2. MIFEGYNE [Suspect]
     Active Substance: MIFEPRISTONE
     Indication: ABORTION INDUCED
     Dosage: 200 MG, 1X/DAY
     Route: 048
     Dates: start: 20030519, end: 20030519

REACTIONS (2)
  - HELLP syndrome [Recovered/Resolved]
  - Product use in unapproved indication [Unknown]

NARRATIVE: CASE EVENT DATE: 20030522
